FAERS Safety Report 16540322 (Version 2)
Quarter: 2019Q3

REPORT INFORMATION
  Report Type: Spontaneous
  Country: PL (occurrence: PL)
  Receive Date: 20190708
  Receipt Date: 20190813
  Transmission Date: 20191004
  Serious: Yes (Life-Threatening, Hospitalization, Disabling, Other)
  Sender: FDA-Public Use
  Company Number: PHHY2019PL155337

PATIENT
  Age: 73 Year
  Sex: Male

DRUGS (1)
  1. TASIGNA [Suspect]
     Active Substance: NILOTINIB
     Indication: CHRONIC MYELOID LEUKAEMIA
     Dosage: 600 MG, QD (IN THE MORNING)
     Route: 048
     Dates: start: 20140312, end: 20190101

REACTIONS (5)
  - Circulatory collapse [Unknown]
  - Myocardial infarction [Recovering/Resolving]
  - Cold sweat [Unknown]
  - Angina pectoris [Unknown]
  - Loss of consciousness [Unknown]

NARRATIVE: CASE EVENT DATE: 20190101
